FAERS Safety Report 8463194-7 (Version None)
Quarter: 2012Q2

REPORT INFORMATION
  Report Type: 
  Country: None (occurrence: None)
  Receive Date: 20120625
  Receipt Date: 20120612
  Transmission Date: 20120825
  Serious: No
  Sender: FDA-Public Use
  Company Number: US-ASTRAZENECA-2011SE20410

PATIENT
  Age: 49 Year
  Sex: Female
  Weight: 104.3 kg

DRUGS (8)
  1. SYMBICORT [Suspect]
     Route: 055
     Dates: start: 20100401
  2. NEXIUM [Suspect]
     Route: 048
     Dates: start: 20100101
  3. PREVENTINAL [Concomitant]
  4. OXYGEN [Concomitant]
  5. SEROQUEL [Suspect]
     Route: 048
     Dates: start: 20100401
  6. CPAP [Concomitant]
  7. OXYCONTIN [Concomitant]
  8. CELEBREX [Concomitant]

REACTIONS (9)
  - WITHDRAWAL SYNDROME [None]
  - PAIN [None]
  - CHRONIC OBSTRUCTIVE PULMONARY DISEASE [None]
  - BODY HEIGHT DECREASED [None]
  - BACK DISORDER [None]
  - MUSCULOSKELETAL DISORDER [None]
  - BURNING SENSATION [None]
  - SPINAL CORD INJURY [None]
  - DIARRHOEA [None]
